FAERS Safety Report 16106760 (Version 1)
Quarter: 2019Q1

REPORT INFORMATION
  Report Type: Spontaneous
  Country: AT (occurrence: AT)
  Receive Date: 20190322
  Receipt Date: 20190322
  Transmission Date: 20190418
  Serious: Yes (Other)
  Sender: FDA-Public Use
  Company Number: AT-ELI_LILLY_AND_COMPANY-AT201903010534

PATIENT
  Age: 33 Year
  Sex: Female

DRUGS (4)
  1. ERBITUX [Suspect]
     Active Substance: CETUXIMAB
     Indication: SKIN CANCER METASTATIC
     Dosage: 400 MG/M2, UNKNOWN
     Route: 042
     Dates: start: 20130626
  2. ERBITUX [Suspect]
     Active Substance: CETUXIMAB
     Dosage: 250 MG/M2, WEEKLY (1/W)
     Route: 042
     Dates: start: 201307, end: 201312
  3. ERBITUX [Suspect]
     Active Substance: CETUXIMAB
     Dosage: 125 MG/M2, WEEKLY (1/W)
     Route: 042
     Dates: start: 201401, end: 201410
  4. ERBITUX [Suspect]
     Active Substance: CETUXIMAB
     Dosage: 125-187 MG/M2, WEEKLY (1/W)
     Route: 042
     Dates: start: 201410

REACTIONS (2)
  - Off label use [Unknown]
  - Recurrent cancer [Unknown]

NARRATIVE: CASE EVENT DATE: 201403
